FAERS Safety Report 9171089 (Version 1)
Quarter: 2013Q1

REPORT INFORMATION
  Report Type: Spontaneous
  Country: NO (occurrence: None)
  Receive Date: 20130315
  Receipt Date: 20130315
  Transmission Date: 20140127
  Serious: Yes (Death, Congenital Anomaly)
  Sender: FDA-Public Use
  Company Number: ABR_00868_2013

PATIENT
  Age: 0 Day
  Sex: Male

DRUGS (5)
  1. ABBOTICIN ES [Suspect]
     Indication: PRODUCT USED FOR UNKNOWN INDICATION
     Dosage: (DF TRANSPLACENTAL)
     Route: 064
  2. ERY-MAX [Suspect]
     Indication: PRODUCT USED FOR UNKNOWN INDICATION
     Dosage: (DF TRANSPLACENTAL)
     Route: 064
  3. AMPICILLIN [Suspect]
     Indication: PRODUCT USED FOR UNKNOWN INDICATION
     Dosage: (DF TRANSPLACENTAL)
     Route: 064
  4. GENTAMICIN [Suspect]
     Indication: PRODUCT USED FOR UNKNOWN INDICATION
     Route: 064
  5. YASMIN [Suspect]
     Indication: PRODUCT USED FOR UNKNOWN INDICATION
     Dosage: (DF TRANSPLACENTAL)
     Route: 064

REACTIONS (7)
  - Maternal drugs affecting foetus [None]
  - Abortion induced [None]
  - Exomphalos [None]
  - Cleft lip and palate [None]
  - Spina bifida cystica [None]
  - Multiple congenital abnormalities [None]
  - Anencephaly [None]
